FAERS Safety Report 11329285 (Version 1)
Quarter: 2015Q3

REPORT INFORMATION
  Report Type: Spontaneous
  Country: DE (occurrence: DE)
  Receive Date: 20150803
  Receipt Date: 20150803
  Transmission Date: 20151125
  Serious: Yes (Other)
  Sender: FDA-Public Use
  Company Number: DE-JNJFOC-20150720646

PATIENT
  Age: 45 Year
  Sex: Male

DRUGS (2)
  1. REGAINE MAENNER [Suspect]
     Active Substance: MINOXIDIL
     Indication: PRODUCT USED FOR UNKNOWN INDICATION
     Route: 061
  2. REGAINE MAENNER [Suspect]
     Active Substance: MINOXIDIL
     Route: 061

REACTIONS (4)
  - Keratoconus [Not Recovered/Not Resolved]
  - Off label use [None]
  - Underdose [Not Recovered/Not Resolved]
  - Hair colour changes [Not Recovered/Not Resolved]
